FAERS Safety Report 17376871 (Version 3)
Quarter: 2021Q1

REPORT INFORMATION
  Report Type: Report from Study
  Country: US (occurrence: US)
  Receive Date: 20200206
  Receipt Date: 20210205
  Transmission Date: 20210419
  Serious: Yes (Other)
  Sender: FDA-Public Use
  Company Number: US-EMD SERONO-9144396

PATIENT
  Age: 65 Year
  Sex: Female

DRUGS (1)
  1. REBIF [Suspect]
     Active Substance: INTERFERON BETA-1A
     Indication: MULTIPLE SCLEROSIS
     Dosage: REBIF PREFILLED SYRINGE.
     Route: 058
     Dates: start: 20070502

REACTIONS (15)
  - Thyroidectomy [Unknown]
  - Bladder discomfort [Recovering/Resolving]
  - Blood pressure increased [Unknown]
  - Blood cholesterol increased [Unknown]
  - Urinary tract infection [Unknown]
  - Injection site erythema [Unknown]
  - Injection site nodule [Unknown]
  - Oesophageal spasm [Recovered/Resolved]
  - Skin abrasion [Recovering/Resolving]
  - Erythema [Recovering/Resolving]
  - Diabetes mellitus [Recovering/Resolving]
  - Uterine cancer [Unknown]
  - Basedow^s disease [Unknown]
  - Urinary retention [Recovering/Resolving]
  - Product use complaint [Unknown]

NARRATIVE: CASE EVENT DATE: 2020
